FAERS Safety Report 5903201-6 (Version None)
Quarter: 2008Q3

REPORT INFORMATION
  Report Type: 
  Country: None (occurrence: None)
  Receive Date: 20080930
  Receipt Date: 20080922
  Transmission Date: 20090109
  Serious: Yes (Hospitalization)
  Sender: FDA-Public Use
  Company Number: FR-JNJFOC-20071106590

PATIENT
  Age: 65 Year
  Sex: Female

DRUGS (7)
  1. OFLOXACIN [Suspect]
     Indication: ABSCESS
     Route: 048
  2. RIFADIN [Suspect]
     Indication: ABSCESS
     Route: 048
  3. PROPOFAN [Suspect]
     Indication: ABSCESS
     Route: 048
  4. INNOHEP [Suspect]
     Indication: ABSCESS
     Route: 058
  5. TOPALGIC LP [Suspect]
     Indication: ABSCESS
     Dosage: CONTROLLED/MODIFIED RELEASE SUGAR-COATED TABLETS
     Route: 048
  6. DAFALGAN [Concomitant]
     Indication: ABSCESS
     Route: 048
  7. DAFALGAN [Concomitant]
     Indication: HYPERTHERMIA
     Route: 048

REACTIONS (1)
  - LEUKOCYTOCLASTIC VASCULITIS [None]
